FAERS Safety Report 16668870 (Version 1)
Quarter: 2019Q3

REPORT INFORMATION
  Report Type: Spontaneous
  Country: GB (occurrence: GB)
  Receive Date: 20190805
  Receipt Date: 20190805
  Transmission Date: 20191004
  Serious: Yes (Hospitalization, Other)
  Sender: FDA-Public Use
  Company Number: GB-009507513-1907GBR015804

PATIENT
  Age: 77 Year
  Sex: Female
  Weight: 50.4 kg

DRUGS (12)
  1. SIMVASTATIN. [Suspect]
     Active Substance: SIMVASTATIN
  2. ATENOLOL. [Concomitant]
     Active Substance: ATENOLOL
  3. ALBUTEROL. [Concomitant]
     Active Substance: ALBUTEROL
  4. CHOLECALCIFEROL [Concomitant]
     Active Substance: CHOLECALCIFEROL
  5. LEVOTHYROXINE SODIUM. [Concomitant]
     Active Substance: LEVOTHYROXINE SODIUM
  6. ITRACONAZOLE. [Suspect]
     Active Substance: ITRACONAZOLE
     Indication: BRONCHOPULMONARY ASPERGILLOSIS
     Dosage: 400 MILLIGRAM, QD
     Route: 048
     Dates: start: 20190531, end: 20190702
  7. ASPIRIN. [Concomitant]
     Active Substance: ASPIRIN
  8. ACETAMINOPHEN. [Concomitant]
     Active Substance: ACETAMINOPHEN
  9. CALCIUM CARBONATE. [Concomitant]
     Active Substance: CALCIUM CARBONATE
  10. LIDOCAINE. [Concomitant]
     Active Substance: LIDOCAINE
  11. ROSUVASTATIN. [Concomitant]
     Active Substance: ROSUVASTATIN
  12. OMEPRAZOLE. [Concomitant]
     Active Substance: OMEPRAZOLE

REACTIONS (4)
  - Muscular weakness [Unknown]
  - Myositis [Recovering/Resolving]
  - Myalgia [Unknown]
  - Drug interaction [Unknown]

NARRATIVE: CASE EVENT DATE: 20190624
